FAERS Safety Report 10209178 (Version 1)
Quarter: 2014Q2

REPORT INFORMATION
  Report Type: Report from Study
  Country: FR (occurrence: FR)
  Receive Date: 20140530
  Receipt Date: 20140530
  Transmission Date: 20141212
  Serious: Yes (Death, Other)
  Sender: FDA-Public Use
  Company Number: FR-BAXTER-2014BAX028132

PATIENT
  Sex: 0

DRUGS (6)
  1. ENDOXAN 1000 MG, POUDRE POUR SOLUTION INJECTABLE [Suspect]
     Indication: PLASMA CELL LEUKAEMIA
     Dosage: DAY 1 AND 8 FOR 4 CYCLES
     Route: 042
  2. DEXAMETHASONE [Suspect]
     Indication: PLASMA CELL LEUKAEMIA
     Dosage: DAYS 1, 4, 8 AND 11 FOR 4 CYCLES
     Route: 042
  3. DEXAMETHASONE [Suspect]
     Dosage: DAY 1 AND 8
     Route: 065
  4. BORTEZOMIB [Suspect]
     Indication: PLASMA CELL LEUKAEMIA
     Dosage: DAYS 1, 4, 8 AND 11 FOR 4 CYCLES
     Route: 042
  5. DOXORUBICIN [Suspect]
     Indication: PLASMA CELL LEUKAEMIA
     Dosage: DAY 4 FOR 4 CYCLES
     Route: 042
  6. MELPHALAN [Suspect]
     Indication: PLASMA CELL LEUKAEMIA
     Route: 065

REACTIONS (2)
  - Death [Fatal]
  - Leukaemia recurrent [Unknown]
